FAERS Safety Report 5485347-2 (Version None)
Quarter: 2007Q4

REPORT INFORMATION
  Report Type: 
  Country: None (occurrence: None)
  Receive Date: 20071010
  Receipt Date: 20071010
  Transmission Date: 20080405
  Serious: Yes (Hospitalization)
  Sender: FDA-Public Use
  Company Number: None

PATIENT
  Sex: Female
  Weight: 57.7 kg

DRUGS (1)
  1. RAPAMYCIN 1 MG TABLETS WYETH PHARMACEUTICALS [Suspect]
     Indication: UTERINE LEIOMYOSARCOMA
     Dosage: 5 MG DAILY PO
     Route: 048
     Dates: start: 20061205, end: 20070312

REACTIONS (5)
  - ACIDOSIS [None]
  - DIARRHOEA [None]
  - HYPOKALAEMIA [None]
  - NAUSEA [None]
  - VOMITING [None]
